FAERS Safety Report 25023064 (Version 2)
Quarter: 2025Q2

REPORT INFORMATION
  Report Type: Report from Study
  Country: US (occurrence: US)
  Receive Date: 20250228
  Receipt Date: 20250611
  Transmission Date: 20250717
  Serious: Yes (Hospitalization)
  Sender: ABBVIE
  Company Number: US-ABBVIE-6152033

PATIENT
  Sex: Male

DRUGS (1)
  1. VENCLEXTA [Suspect]
     Active Substance: VENETOCLAX
     Indication: Chronic lymphocytic leukaemia
     Route: 048
     Dates: start: 202206

REACTIONS (7)
  - Adverse drug reaction [Unknown]
  - Cellulitis [Unknown]
  - Clostridium difficile infection [Unknown]
  - Rash [Unknown]
  - Arthropod bite [Unknown]
  - Diarrhoea [Unknown]
  - Rash macular [Unknown]
